FAERS Safety Report 4316265-0 (Version None)
Quarter: 2004Q1

REPORT INFORMATION
  Report Type: 
  Country: None (occurrence: None)
  Receive Date: 20040310
  Receipt Date: 20030429
  Transmission Date: 20041129
  Serious: Yes (Other)
  Sender: FDA-Public Use
  Company Number: HQ3003827JUN2002

PATIENT
  Age: 65 Year
  Sex: Male
  Weight: 90.8 kg

DRUGS (2)
  1. PROTONIX [Suspect]
     Indication: GASTROOESOPHAGEAL REFLUX DISEASE
     Dosage: 40 MG 1 X PER DAY, ORAL
     Route: 048
     Dates: start: 20020530, end: 20020608
  2. MULTIVITAMIN [Suspect]

REACTIONS (3)
  - DRUG INTERACTION [None]
  - PALPITATIONS [None]
  - SUPRAVENTRICULAR EXTRASYSTOLES [None]
